FAERS Safety Report 9980729 (Version 2)
Quarter: 2014Q1

REPORT INFORMATION
  Report Type: Spontaneous
  Country: BR (occurrence: BR)
  Receive Date: 20140307
  Receipt Date: 20140318
  Transmission Date: 20141002
  Serious: Yes (Other)
  Sender: FDA-Public Use
  Company Number: BR-AMGEN-BRASP2014016033

PATIENT
  Age: 65 Year
  Sex: Female
  Weight: 51 kg

DRUGS (4)
  1. ENBREL [Suspect]
     Indication: RHEUMATOID ARTHRITIS
     Dosage: 50 MG, ONCE WEEKLY
     Route: 058
     Dates: start: 2012, end: 201402
  2. PREDNISONE [Concomitant]
     Dosage: 5 MG (1 TABLET), ONCE A DAY
     Route: 048
  3. TAPAZOL                            /00022901/ [Concomitant]
     Dosage: 5 MG (1 TABLET), ONCE A DAY
     Route: 048
  4. ALENDRONATE [Concomitant]
     Dosage: 70 MG (1 TABLET), ONCE A DAY
     Route: 048

REACTIONS (3)
  - Spinal disorder [Unknown]
  - Condition aggravated [Unknown]
  - Urinary tract infection [Unknown]
